FAERS Safety Report 9312068 (Version 2)
Quarter: 2013Q2

REPORT INFORMATION
  Report Type: Spontaneous
  Country: US (occurrence: US)
  Receive Date: 20130528
  Receipt Date: 20130614
  Transmission Date: 20140414
  Serious: No
  Sender: FDA-Public Use
  Company Number: US-009507513-1305USA014518

PATIENT
  Age: 64 Year
  Sex: Male

DRUGS (9)
  1. JANUVIA [Suspect]
     Indication: BLOOD GLUCOSE
     Dosage: ONCE A DAY IN THE EARLY MORNING
     Route: 048
     Dates: start: 201305
  2. JANUVIA [Suspect]
     Dosage: ONCE A DAY, IN THE EARLY MORNING
     Route: 048
     Dates: start: 200805
  3. METFORMIN [Concomitant]
     Dosage: 1000 MG, TWICE A DAY
  4. SPIRONOLACTONE [Concomitant]
  5. BENAZEPRIL HYDROCHLORIDE [Concomitant]
  6. CARVEDILOL BETA [Concomitant]
  7. POTASSIUM (UNSPECIFIED) [Concomitant]
  8. SERTRALINE HYDROCHLORIDE [Concomitant]
  9. ZETIA [Concomitant]

REACTIONS (2)
  - Blood glucose increased [Unknown]
  - Drug ineffective [Unknown]
